FAERS Safety Report 12571924 (Version 2)
Quarter: 2016Q3

REPORT INFORMATION
  Report Type: Spontaneous
  Country: US (occurrence: US)
  Receive Date: 20160719
  Receipt Date: 20160916
  Transmission Date: 20161109
  Serious: No
  Sender: FDA-Public Use
  Company Number: US-ALKERMES INC.-ALK-2016-001240

PATIENT
  Age: 35 Year
  Sex: Female

DRUGS (2)
  1. ARISTADA [Suspect]
     Active Substance: ARIPIPRAZOLE LAUROXIL
     Indication: BIPOLAR DISORDER
     Dosage: 882 MG, UNK
     Route: 030
     Dates: start: 20160226
  2. ARISTADA [Suspect]
     Active Substance: ARIPIPRAZOLE LAUROXIL
     Indication: MANIA

REACTIONS (4)
  - Agitation [Unknown]
  - Off label use [Unknown]
  - Mood altered [Unknown]
  - Impatience [Unknown]
